FAERS Safety Report 8098846-4 (Version None)
Quarter: 2012Q1

REPORT INFORMATION
  Report Type: 
  Country: None (occurrence: None)
  Receive Date: 20120129
  Receipt Date: 20110922
  Transmission Date: 20120608
  Serious: Yes (Hospitalization)
  Sender: FDA-Public Use
  Company Number: US-ABBOTT-11P-163-0857629-00

PATIENT
  Sex: Male

DRUGS (1)
  1. HUMIRA [Suspect]
     Indication: PSORIASIS
     Dosage: ON HOLD
     Route: 058
     Dates: end: 20110908

REACTIONS (3)
  - NEUTROPHIL COUNT DECREASED [None]
  - TONSILLITIS [None]
  - HEPATIC ENZYME INCREASED [None]
